APPROVED DRUG PRODUCT: NEUTREXIN
Active Ingredient: TRIMETREXATE GLUCURONATE
Strength: EQ 25MG BASE/VIAL
Dosage Form/Route: INJECTABLE;INJECTION
Application: N020326 | Product #001
Applicant: MEDIMMUNE ONCOLOGY INC
Approved: Dec 17, 1993 | RLD: No | RS: No | Type: DISCN